FAERS Safety Report 6254782-7 (Version None)
Quarter: 2009Q3

REPORT INFORMATION
  Report Type: 
  Country: None (occurrence: None)
  Receive Date: 20090702
  Receipt Date: 20090620
  Transmission Date: 20100115
  Serious: Yes (Death, Other)
  Sender: FDA-Public Use
  Company Number: US-PFIZER INC-2009206658

PATIENT
  Sex: Male

DRUGS (6)
  1. SUTENT [Suspect]
     Indication: RENAL CELL CARCINOMA
     Dosage: 50 MG, 1X/DAY
     Route: 048
     Dates: start: 20090203
  2. FUROSEMIDE [Concomitant]
     Dosage: 80 MG, 1X/DAY
  3. LISINOPRIL [Concomitant]
  4. PERCOCET [Concomitant]
  5. CARVEDILOL [Concomitant]
     Dosage: 6.25 MG, 2X/DAY
  6. ASPIRIN [Concomitant]
     Dosage: 325 MG, 1X/DAY

REACTIONS (4)
  - DEATH [None]
  - EAR HAEMORRHAGE [None]
  - EPISTAXIS [None]
  - EYE HAEMORRHAGE [None]
